FAERS Safety Report 5215728-3 (Version None)
Quarter: 2007Q1

REPORT INFORMATION
  Report Type: 
  Country: None (occurrence: None)
  Receive Date: 20070123
  Receipt Date: 20070109
  Transmission Date: 20070707
  Serious: Yes (Other)
  Sender: FDA-Public Use
  Company Number: FR-NOVOPROD-260007

PATIENT
  Age: 62 Year
  Sex: Female
  Weight: 84 kg

DRUGS (1)
  1. ACTIVELLE [Suspect]
     Indication: HORMONE REPLACEMENT THERAPY
     Dates: start: 20040701, end: 20061101

REACTIONS (1)
  - RESPIRATORY DISORDER [None]
